FAERS Safety Report 5163688-6 (Version None)
Quarter: 2006Q4

REPORT INFORMATION
  Report Type: 
  Country: None (occurrence: None)
  Receive Date: 20061204
  Receipt Date: 20010227
  Transmission Date: 20070319
  Serious: Yes (Hospitalization)
  Sender: FDA-Public Use
  Company Number: FR-GLAXOSMITHKLINE-B0100890A

PATIENT
  Age: 1 Day
  Sex: Male
  Weight: 2.8 kg

DRUGS (6)
  1. RETROVIR [Suspect]
     Indication: ANTIVIRAL PROPHYLAXIS
     Route: 048
     Dates: start: 20000929, end: 20001027
  2. COMBIVIR [Suspect]
     Indication: HIV INFECTION
     Dates: end: 20000929
  3. VIRAMUNE [Suspect]
     Indication: ANTIVIRAL PROPHYLAXIS
     Route: 048
  4. INSULIN [Concomitant]
     Dates: end: 20000929
  5. METHYLDOPA [Concomitant]
     Dates: end: 20000929
  6. CLONIDINE [Concomitant]
     Dates: end: 20000929

REACTIONS (19)
  - ABNORMAL BEHAVIOUR [None]
  - AFFECT LABILITY [None]
  - AGITATION [None]
  - ANAEMIA [None]
  - COMMUNICATION DISORDER [None]
  - DISTURBANCE IN ATTENTION [None]
  - DRUG EXPOSURE DURING PREGNANCY [None]
  - ENCOPRESIS [None]
  - HYPOGLYCAEMIA [None]
  - IRRITABILITY [None]
  - LACTIC ACIDOSIS [None]
  - LEARNING DISORDER [None]
  - MECONIUM IN AMNIOTIC FLUID [None]
  - OESOPHAGITIS [None]
  - RESPIRATORY DISTRESS [None]
  - SPEECH DISORDER [None]
  - TACHYCARDIA [None]
  - TACHYPNOEA [None]
  - TREMOR [None]
